FAERS Safety Report 24909628 (Version 1)
Quarter: 2025Q1

REPORT INFORMATION
  Report Type: Spontaneous
  Country: US (occurrence: US)
  Receive Date: 20250131
  Receipt Date: 20250131
  Transmission Date: 20250409
  Serious: No
  Sender: BRISTOL-MYERS SQUIBB COMPANY
  Company Number: US-BRISTOL-MYERS SQUIBB COMPANY-2025-014006

PATIENT
  Age: 81 Year
  Sex: Female
  Weight: 52.16 kg

DRUGS (1)
  1. ELIQUIS [Suspect]
     Active Substance: APIXABAN
     Indication: Atrial fibrillation
     Dates: start: 2024

REACTIONS (7)
  - Rash [Unknown]
  - Fatigue [Unknown]
  - Urticaria [Unknown]
  - Lip swelling [Unknown]
  - Swelling face [Unknown]
  - Insomnia [Unknown]
  - Dizziness [Unknown]
